FAERS Safety Report 18051139 (Version 1)
Quarter: 2020Q3

REPORT INFORMATION
  Report Type: Spontaneous
  Country: US (occurrence: US)
  Receive Date: 20200721
  Receipt Date: 20200721
  Transmission Date: 20201103
  Serious: Yes (Other)
  Sender: FDA-Public Use
  Company Number: US-BRISTOL-MYERS SQUIBB COMPANY-BMS-2020-056874

PATIENT
  Sex: Female

DRUGS (1)
  1. SPRYCEL [Suspect]
     Active Substance: DASATINIB
     Indication: NERVOUS SYSTEM NEOPLASM
     Dosage: 50 MILLIGRAM, QD
     Route: 048
     Dates: start: 2016

REACTIONS (3)
  - Colitis [Unknown]
  - Intentional product use issue [Unknown]
  - Oesophagitis [Unknown]
